FAERS Safety Report 6256536-4 (Version None)
Quarter: 2009Q3

REPORT INFORMATION
  Report Type: 
  Country: None (occurrence: None)
  Receive Date: 20090706
  Receipt Date: 20090629
  Transmission Date: 20100115
  Serious: Yes (Other)
  Sender: FDA-Public Use
  Company Number: US-JNJFOC-20090700222

PATIENT
  Sex: Female

DRUGS (2)
  1. DURAGESIC-100 [Suspect]
     Indication: ARTHRALGIA
     Dosage: 2 OF 75 UG/HR PATCH
     Route: 062
  2. SINGULAIR [Concomitant]
     Indication: MULTIPLE ALLERGIES
     Route: 048

REACTIONS (1)
  - PNEUMONIA [None]
